FAERS Safety Report 21404541 (Version 1)
Quarter: 2022Q4

REPORT INFORMATION
  Report Type: Report from Study
  Country: US (occurrence: US)
  Receive Date: 20221003
  Receipt Date: 20221003
  Transmission Date: 20230113
  Serious: Yes (Death, Life-Threatening, Hospitalization, Other)
  Sender: FDA-Public Use
  Company Number: US-BRISTOL-MYERS SQUIBB COMPANY-2022-114386

PATIENT
  Age: 70 Year
  Sex: Male
  Weight: 63.5 kg

DRUGS (4)
  1. NIVOLUMAB [Suspect]
     Active Substance: NIVOLUMAB
     Indication: Gastrooesophageal cancer
     Route: 042
     Dates: start: 20220520, end: 20220811
  2. FLUOROURACIL [Suspect]
     Active Substance: FLUOROURACIL
     Indication: Gastrooesophageal cancer
     Dosage: 85MG/M2, 400 MG/M2, 28
     Route: 042
     Dates: start: 20220520, end: 20220811
  3. OXALIPLATIN [Suspect]
     Active Substance: OXALIPLATIN
     Indication: Gastrooesophageal cancer
     Dosage: 85MG/M2, 400 MG/M2, 28
     Route: 042
     Dates: start: 20220520, end: 20220811
  4. LEUCOVORIN [Suspect]
     Active Substance: LEUCOVORIN
     Indication: Gastrooesophageal cancer
     Dosage: 85MG/M2, 400 MG/M2, 28
     Route: 042
     Dates: start: 20220520, end: 20220811

REACTIONS (7)
  - Dyspnoea [Fatal]
  - Immune-mediated hepatitis [Unknown]
  - Acute respiratory failure [Unknown]
  - Pulmonary embolism [Unknown]
  - Device related thrombosis [Unknown]
  - Acute kidney injury [Unknown]
  - Hyperkalaemia [Unknown]

NARRATIVE: CASE EVENT DATE: 20220921
